FAERS Safety Report 4622730-9 (Version None)
Quarter: 2005Q1

REPORT INFORMATION
  Report Type: 
  Country: None (occurrence: None)
  Receive Date: 20050329
  Receipt Date: 20050329
  Transmission Date: 20050727
  Serious: Yes (Other)
  Sender: FDA-Public Use
  Company Number: None

PATIENT
  Sex: Male
  Weight: 77.3 kg

DRUGS (7)
  1. CARBOPLATIN [Suspect]
     Indication: NEOPLASM MALIGNANT
     Dosage: 2 AUC, IV, WEEKLY
     Route: 042
     Dates: start: 20050217
  2. CARBOPLATIN [Suspect]
     Indication: NEOPLASM MALIGNANT
     Dosage: 2 AUC, IV, WEEKLY
     Route: 042
     Dates: start: 20050224
  3. CARBOPLATIN [Suspect]
     Indication: NEOPLASM MALIGNANT
     Dosage: 2 AUC, IV, WEEKLY
     Route: 042
     Dates: start: 20050303
  4. CARBOPLATIN [Suspect]
     Indication: NEOPLASM MALIGNANT
     Dosage: 2 AUC, IV, WEEKLY
     Route: 042
     Dates: start: 20050309
  5. CAPECITABINE 1800 MG BIDX14 D. PT WAS MIDCYCLE [Suspect]
     Indication: NEOPLASM MALIGNANT
     Dosage: 1800 MG P.O. BIDX14D
     Route: 048
     Dates: start: 20050217, end: 20050302
  6. CAPECITABINE 1800 MG BIDX14 D. PT WAS MIDCYCLE [Suspect]
     Indication: NEOPLASM MALIGNANT
     Dosage: 1800 MG P.O. BIDX14D
     Route: 048
     Dates: start: 20050310
  7. CAPECITABINE 1800 MG BIDX14 D. PT WAS MIDCYCLE [Suspect]
     Indication: NEOPLASM MALIGNANT
     Dosage: 1800 MG P.O. BIDX14D
     Route: 048
     Dates: start: 20050316

REACTIONS (4)
  - COORDINATION ABNORMAL [None]
  - MOTOR DYSFUNCTION [None]
  - SENSORY DISTURBANCE [None]
  - SENSORY LOSS [None]
